FAERS Safety Report 16070342 (Version 1)
Quarter: 2019Q1

REPORT INFORMATION
  Report Type: Spontaneous
  Country: JP (occurrence: JP)
  Receive Date: 20190314
  Receipt Date: 20190314
  Transmission Date: 20190418
  Serious: Yes (Hospitalization, Other)
  Sender: FDA-Public Use
  Company Number: JP-009507513-1711JPN001859J

PATIENT
  Age: 71 Year
  Sex: Male
  Weight: 96 kg

DRUGS (1)
  1. KEYTRUDA [Suspect]
     Active Substance: PEMBROLIZUMAB
     Indication: NON-SMALL CELL LUNG CANCER
     Dosage: 200 MG, Q3W
     Route: 041
     Dates: start: 20170601

REACTIONS (7)
  - Pyrexia [Unknown]
  - Tumour haemorrhage [Unknown]
  - Haematochezia [Unknown]
  - Adrenal disorder [Not Recovered/Not Resolved]
  - Diarrhoea [Unknown]
  - Hypothyroidism [Not Recovered/Not Resolved]
  - Appendicitis [Unknown]

NARRATIVE: CASE EVENT DATE: 20170803
